FAERS Safety Report 7356194-1 (Version None)
Quarter: 2011Q1

REPORT INFORMATION
  Report Type: 
  Country: None (occurrence: None)
  Receive Date: 20110316
  Receipt Date: 20110309
  Transmission Date: 20110831
  Serious: Yes (Other)
  Sender: FDA-Public Use
  Company Number: US-PFIZER INC-2011052490

PATIENT
  Sex: Male

DRUGS (1)
  1. CHAPSTICK CLASSIC [Suspect]
     Dosage: UNK
     Dates: start: 20110304, end: 20110304

REACTIONS (5)
  - APPLICATION SITE ANAESTHESIA [None]
  - APPLICATION SITE PAIN [None]
  - APPLICATION SITE REACTION [None]
  - APPLICATION SITE SWELLING [None]
  - GINGIVAL DISORDER [None]
